FAERS Safety Report 7502710-6 (Version None)
Quarter: 2011Q2

REPORT INFORMATION
  Report Type: 
  Country: None (occurrence: None)
  Receive Date: 20110525
  Receipt Date: 20110523
  Transmission Date: 20111010
  Serious: Yes (Death)
  Sender: FDA-Public Use
  Company Number: PHHY2011US26044

PATIENT
  Sex: Female
  Weight: 51.8 kg

DRUGS (3)
  1. EXJADE [Suspect]
     Indication: NEOPLASM
     Dosage: UNK
     Route: 048
  2. EXJADE [Suspect]
     Indication: SERUM FERRITIN INCREASED
     Dosage: 1500 MG
     Route: 048
     Dates: start: 20100628
  3. VIDAZA [Concomitant]
     Indication: MYELODYSPLASTIC SYNDROME
     Dosage: 114 MG, DAILY
     Route: 042

REACTIONS (4)
  - SERUM FERRITIN INCREASED [None]
  - MYELODYSPLASTIC SYNDROME TRANSFORMATION [None]
  - SPLEEN DISORDER [None]
  - LIVER DISORDER [None]
